FAERS Safety Report 8523428-7 (Version None)
Quarter: 2012Q3

REPORT INFORMATION
  Report Type: 
  Country: None (occurrence: None)
  Receive Date: 20120713
  Receipt Date: 20120713
  Transmission Date: 20120928
  Serious: Yes (Hospitalization)
  Sender: FDA-Public Use
  Company Number: None

PATIENT
  Age: 67 Year
  Sex: Male
  Weight: 84.1 kg

DRUGS (1)
  1. IBUPROFEN [Suspect]
     Dosage: 800 MG TID PO
     Route: 048
     Dates: start: 20120110, end: 20120113

REACTIONS (1)
  - GASTRIC HAEMORRHAGE [None]
